FAERS Safety Report 19352581 (Version 3)
Quarter: 2021Q3

REPORT INFORMATION
  Report Type: Spontaneous
  Country: JP (occurrence: JP)
  Receive Date: 20210531
  Receipt Date: 20210802
  Transmission Date: 20211014
  Serious: Yes (Other)
  Sender: FDA-Public Use
  Company Number: JP-BRISTOL-MYERS SQUIBB COMPANY-BMS-2021-051706

PATIENT
  Age: 81 Year
  Sex: Female

DRUGS (5)
  1. OPDIVO [Suspect]
     Active Substance: NIVOLUMAB
     Indication: MALIGNANT MELANOMA
     Dosage: UNK
     Route: 041
  2. NIMUSTINE HYDROCHLORIDE [Concomitant]
     Active Substance: NIMUSTINE HYDROCHLORIDE
     Indication: MALIGNANT MELANOMA
     Route: 065
  3. INTERFERON BETA NOS [Concomitant]
     Active Substance: INTERFERON BETA
     Indication: MALIGNANT MELANOMA
     Route: 065
  4. VINCRISTINE SULFATE. [Concomitant]
     Active Substance: VINCRISTINE SULFATE
     Indication: MALIGNANT MELANOMA
     Route: 065
  5. DACARBAZINE. [Concomitant]
     Active Substance: DACARBAZINE
     Indication: MALIGNANT MELANOMA
     Route: 065

REACTIONS (1)
  - Type 1 diabetes mellitus [Unknown]
